FAERS Safety Report 15708075 (Version 1)
Quarter: 2018Q4

REPORT INFORMATION
  Report Type: Report from Study
  Country: US (occurrence: US)
  Receive Date: 20181211
  Receipt Date: 20181211
  Transmission Date: 20190205
  Serious: Yes (Hospitalization)
  Sender: FDA-Public Use
  Company Number: US-ROCHE-2216035

PATIENT
  Age: 75 Year
  Sex: Male
  Weight: 88.1 kg

DRUGS (2)
  1. BEVACIZUMAB. [Suspect]
     Active Substance: BEVACIZUMAB
     Indication: METASTATIC RENAL CELL CARCINOMA
     Dosage: LAST DOSE ON 03/OCT/2018
     Route: 042
     Dates: start: 20180706
  2. ATEZOLIZUMAB. [Suspect]
     Active Substance: ATEZOLIZUMAB
     Indication: METASTATIC RENAL CELL CARCINOMA
     Dosage: LAST DOSE ON 03/OCT/2018
     Route: 042
     Dates: start: 20180706

REACTIONS (2)
  - Mucosal inflammation [Unknown]
  - Dysphagia [Unknown]

NARRATIVE: CASE EVENT DATE: 20181116
